FAERS Safety Report 7541847-2 (Version None)
Quarter: 2011Q2

REPORT INFORMATION
  Report Type: 
  Country: None (occurrence: None)
  Receive Date: 20110524
  Receipt Date: 20110316
  Transmission Date: 20111010
  Serious: No
  Sender: FDA-Public Use
  Company Number: 029396

PATIENT
  Sex: Female

DRUGS (2)
  1. CIMZIA [Suspect]
     Indication: CROHN'S DISEASE
     Dosage: 400 MG 1X/28 DAYS SUBCUTANEOUS, 200 MG 1X/2 WEEKS SUBCUTANEOUS
     Route: 058
     Dates: start: 20110310
  2. CIMZIA [Suspect]
     Indication: CROHN'S DISEASE
     Dosage: 400 MG 1X/28 DAYS SUBCUTANEOUS, 200 MG 1X/2 WEEKS SUBCUTANEOUS
     Route: 058
     Dates: start: 20100826, end: 20110201

REACTIONS (1)
  - FREQUENT BOWEL MOVEMENTS [None]
